FAERS Safety Report 12435819 (Version 3)
Quarter: 2018Q1

REPORT INFORMATION
  Report Type: Report from Study
  Country: CA (occurrence: CA)
  Receive Date: 20160603
  Receipt Date: 20180223
  Transmission Date: 20180508
  Serious: Yes (Other)
  Sender: FDA-Public Use
  Company Number: PHHY2010CA82580

PATIENT
  Age: 70 Year
  Sex: Male

DRUGS (2)
  1. SANDOSTATIN LAR DEPOT [Suspect]
     Active Substance: OCTREOTIDE ACETATE
     Indication: ACRAL OVERGROWTH
     Dosage: 20 MG, QMO
     Route: 030
     Dates: start: 20051219
  2. SANDOSTATIN LAR DEPOT [Suspect]
     Active Substance: OCTREOTIDE ACETATE
     Indication: NEUROENDOCRINE TUMOUR
     Dosage: 10 MG, QMO (EVERY 4 WEEKS)
     Route: 030
     Dates: start: 20140123

REACTIONS (15)
  - Nephrolithiasis [Unknown]
  - Sinus congestion [Recovering/Resolving]
  - Blood urine present [Unknown]
  - Headache [Recovering/Resolving]
  - Dyspnoea [Recovering/Resolving]
  - Back pain [Unknown]
  - Body temperature decreased [Unknown]
  - Hepatic steatosis [Unknown]
  - Chromaturia [Unknown]
  - Renal cyst [Unknown]
  - Blood pressure systolic increased [Unknown]
  - Bladder neoplasm [Unknown]
  - Rhinorrhoea [Recovering/Resolving]
  - Nausea [Unknown]
  - Blood glucose increased [Unknown]

NARRATIVE: CASE EVENT DATE: 20120711
